FAERS Safety Report 6715529-0 (Version None)
Quarter: 2010Q2

REPORT INFORMATION
  Report Type: 
  Country: None (occurrence: None)
  Receive Date: 20100507
  Receipt Date: 20100429
  Transmission Date: 20101027
  Serious: Yes (Hospitalization, Other)
  Sender: FDA-Public Use
  Company Number: BR-ROCHE-697989

PATIENT
  Sex: Female
  Weight: 76 kg

DRUGS (1)
  1. XENICAL [Suspect]
     Indication: WEIGHT CONTROL
     Dosage: FREQUENCY: 2 CAPS/DAY; START  AND STOP DATE: 1991-1993
     Route: 048
     Dates: start: 19910101, end: 19910101

REACTIONS (6)
  - ANAPHYLACTIC SHOCK [None]
  - CARDIAC DISORDER [None]
  - ILL-DEFINED DISORDER [None]
  - INFARCTION [None]
  - TYPE 2 DIABETES MELLITUS [None]
  - WEIGHT INCREASED [None]
